FAERS Safety Report 8889378 (Version 1)
Quarter: 2012Q4

REPORT INFORMATION
  Report Type: Spontaneous
  Country: US (occurrence: None)
  Receive Date: 20121102
  Receipt Date: 20121102
  Transmission Date: 20130627
  Serious: Yes (Hospitalization, Disabling)
  Sender: FDA-Public Use
  Company Number: None

PATIENT
  Age: 35 Year
  Sex: Male
  Weight: 104.33 kg

DRUGS (10)
  1. LEVAQUIN [Suspect]
     Indication: RENAL TRANSPLANT
     Route: 048
     Dates: start: 20120606, end: 20120902
  2. LEVAQUIN [Suspect]
  3. PROGRAF [Concomitant]
  4. CELLCEPT [Concomitant]
  5. PREDNISONE [Concomitant]
  6. ACYCLOVIR [Concomitant]
  7. MYCELEX [Concomitant]
  8. PEPCID [Concomitant]
  9. NOVOLOG [Concomitant]
  10. LANTUS [Concomitant]

REACTIONS (9)
  - Arthralgia [None]
  - Arthralgia [None]
  - Musculoskeletal stiffness [None]
  - Musculoskeletal pain [None]
  - Tendonitis [None]
  - Tendon rupture [None]
  - Pain [None]
  - Vomiting [None]
  - Periarthritis [None]
